FAERS Safety Report 10484128 (Version 1)
Quarter: 2014Q3

REPORT INFORMATION
  Report Type: Spontaneous
  Country: US (occurrence: None)
  Receive Date: 20140926
  Receipt Date: 20140926
  Transmission Date: 20150326
  Serious: Yes (Other)
  Sender: FDA-Public Use
  Company Number: 2014HINLIT0861

PATIENT
  Age: 51 Year
  Sex: Male

DRUGS (5)
  1. LOPINAVIR + RITONAVIR (LOPINAVIR, RITONAVIR) UNKNOWN [Suspect]
     Active Substance: LOPINAVIR\RITONAVIR
     Indication: HIV INFECTION
  2. ROSIGLITAZONE (ROSIGLITAZONE) [Concomitant]
  3. GLIPERIMIDE (GLIPERIMIDE) [Concomitant]
  4. RITONAVIR (RITONAVIR) [Suspect]
     Active Substance: RITONAVIR
     Indication: HIV INFECTION
  5. FLUTICASONE PROPIONATE (FLUTICASONE PROPIONATE) (FLUTICASONE PROPIONATE) [Suspect]
     Active Substance: FLUTICASONE PROPIONATE
     Indication: PRODUCT USED FOR UNKNOWN INDICATION

REACTIONS (8)
  - Asthenia [None]
  - Mood altered [None]
  - Blood glucose increased [None]
  - Drug interaction [None]
  - Cushing^s syndrome [None]
  - Cachexia [None]
  - Abdominal distension [None]
  - Muscle spasms [None]
